FAERS Safety Report 22002931 (Version 28)
Quarter: 2024Q4

REPORT INFORMATION
  Report Type: Spontaneous
  Country: CA (occurrence: CA)
  Receive Date: 20230217
  Receipt Date: 20241127
  Transmission Date: 20250114
  Serious: Yes (Hospitalization, Other)
  Sender: CELLTRION
  Company Number: CA-CELLTRION INC.-2023CA000337

PATIENT

DRUGS (20)
  1. INFLECTRA [Suspect]
     Active Substance: INFLIXIMAB-DYYB
     Indication: Crohn^s disease
     Dosage: 5 MG/KG, WEEKS 0,2,6 THEN Q 8 WEEKS - INCREASE TO NEXT HUNDREDTH
     Route: 042
     Dates: start: 20221222
  2. INFLECTRA [Suspect]
     Active Substance: INFLIXIMAB-DYYB
     Dosage: 5 MG/KG, WEEKS 0,2,6 THEN Q 8 WEEKS - INCREASE TO NEXT HUNDREDTH
     Route: 042
     Dates: start: 20230112
  3. INFLECTRA [Suspect]
     Active Substance: INFLIXIMAB-DYYB
     Dosage: 5 MG/KG (300 MG), WEEKS 0,2,6 THEN Q 8 WEEKS - INCREASE TO NEXT HUNDREDTH
     Route: 042
     Dates: start: 20230208
  4. INFLECTRA [Suspect]
     Active Substance: INFLIXIMAB-DYYB
     Dosage: 7.5 MG/KG, Q 6 WEEKS
     Route: 042
     Dates: start: 20230327
  5. INFLECTRA [Suspect]
     Active Substance: INFLIXIMAB-DYYB
     Dosage: 7.5 MG/KG (IN HOSPITAL), Q 6 WEEKS
     Route: 042
     Dates: start: 20230510
  6. INFLECTRA [Suspect]
     Active Substance: INFLIXIMAB-DYYB
     Dosage: 10 MG/KG, Q 4 WEEKS
     Route: 042
     Dates: start: 20230607
  7. INFLECTRA [Suspect]
     Active Substance: INFLIXIMAB-DYYB
     Dosage: 500 MG, Q 4 WEEKS
     Route: 042
     Dates: start: 20230720
  8. INFLECTRA [Suspect]
     Active Substance: INFLIXIMAB-DYYB
     Dosage: 600 MG, Q 4 WEEKS
     Route: 042
     Dates: start: 20230817
  9. INFLECTRA [Suspect]
     Active Substance: INFLIXIMAB-DYYB
     Dosage: 600 MG, Q 4 WEEKS
     Route: 042
     Dates: start: 20230914
  10. INFLECTRA [Suspect]
     Active Substance: INFLIXIMAB-DYYB
     Dosage: 600 MG, Q 4 WEEKS (SUPPOSED TO RECEIVE 10MG/KG)
     Route: 042
     Dates: start: 20231012
  11. INFLECTRA [Suspect]
     Active Substance: INFLIXIMAB-DYYB
     Dosage: 500 MG AFTER 6 WEEKS AND 1 DAY (PRESCRIBED WAS Q 4 WEEKS)
     Route: 042
     Dates: start: 20231124
  12. INFLECTRA [Suspect]
     Active Substance: INFLIXIMAB-DYYB
     Dosage: 500 MG AFTER 7 WEEKS (PRESCRIBED WAS Q 4 WEEKS)
     Route: 042
     Dates: start: 20240112
  13. INFLECTRA [Suspect]
     Active Substance: INFLIXIMAB-DYYB
     Dosage: 500 MG AFTER 7 WEEKS (PRESCRIBED WAS Q 4 WEEKS)
     Route: 042
     Dates: start: 20240112
  14. INFLECTRA [Suspect]
     Active Substance: INFLIXIMAB-DYYB
     Dosage: 500 MG AFTER 6 WEEKS (PRESCRIBED WAS Q 4 WEEKS)
     Route: 042
     Dates: start: 20240223
  15. INFLECTRA [Suspect]
     Active Substance: INFLIXIMAB-DYYB
     Dosage: 500 MG AFTER 6 WEEKS (PRESCRIBED WAS Q 4 WEEKS)
     Route: 042
     Dates: start: 20240223
  16. INFLECTRA [Suspect]
     Active Substance: INFLIXIMAB-DYYB
     Dosage: 10 MG/KG, Q 4 WEEKS
     Route: 042
     Dates: start: 20240327
  17. INFLECTRA [Suspect]
     Active Substance: INFLIXIMAB-DYYB
     Dosage: 10 MG/KG AFTER 5 WEEKS AND 6 DAYS (PRESCRIBED WAS Q 4 WEEKS)
     Route: 042
     Dates: start: 20240507
  18. INFLECTRA [Suspect]
     Active Substance: INFLIXIMAB-DYYB
     Dosage: 500 MG AFTER 4 WEEKS AND 6 DAYS (PRESCRIBED WAS Q 4 WEEKS)
     Route: 042
     Dates: start: 20240610
  19. INFLECTRA [Suspect]
     Active Substance: INFLIXIMAB-DYYB
     Dosage: 500 MG AFTER 6 WEEKS AND 4 DAYS (PRESCRIBED WAS Q 4 WEEKS)
     Route: 042
     Dates: start: 20240729
  20. INFLECTRA [Suspect]
     Active Substance: INFLIXIMAB-DYYB
     Dosage: 500 MG AFTER 3 WEEKS AND 6 DAYS (10MG/KG, EVERY 4 WEEKS)
     Route: 042
     Dates: start: 20241107

REACTIONS (47)
  - Rectal abscess [Not Recovered/Not Resolved]
  - Sinusitis bacterial [Recovering/Resolving]
  - Condition aggravated [Recovering/Resolving]
  - Haemorrhoids [Not Recovered/Not Resolved]
  - Fatigue [Not Recovered/Not Resolved]
  - Abdominal pain [Not Recovered/Not Resolved]
  - Haematochezia [Not Recovered/Not Resolved]
  - Haemorrhage [Recovered/Resolved]
  - Gastrointestinal inflammation [Not Recovered/Not Resolved]
  - Arthralgia [Recovered/Resolved]
  - Nasopharyngitis [Recovered/Resolved]
  - Chest discomfort [Recovering/Resolving]
  - Dyspnoea [Recovering/Resolving]
  - Headache [Not Recovered/Not Resolved]
  - Myalgia [Recovering/Resolving]
  - Chills [Recovering/Resolving]
  - Night sweats [Recovering/Resolving]
  - Proctalgia [Unknown]
  - Tachycardia [Unknown]
  - Body temperature increased [Unknown]
  - Secretion discharge [Unknown]
  - Influenza [Unknown]
  - Mucous stools [Not Recovered/Not Resolved]
  - Pain in extremity [Not Recovered/Not Resolved]
  - Asthenia [Not Recovered/Not Resolved]
  - Pyrexia [Not Recovered/Not Resolved]
  - Abscess [Recovered/Resolved]
  - Mental disorder [Not Recovered/Not Resolved]
  - Decreased interest [Not Recovered/Not Resolved]
  - Discouragement [Not Recovered/Not Resolved]
  - Fatigue [Not Recovered/Not Resolved]
  - Anxiety [Not Recovered/Not Resolved]
  - Malaise [Not Recovered/Not Resolved]
  - Viral upper respiratory tract infection [Not Recovered/Not Resolved]
  - Myalgia [Not Recovered/Not Resolved]
  - Psychiatric symptom [Not Recovered/Not Resolved]
  - Gastroenteritis [Unknown]
  - Nasal congestion [Recovering/Resolving]
  - Cough [Not Recovered/Not Resolved]
  - Anal fistula [Recovered/Resolved]
  - Depression [Not Recovered/Not Resolved]
  - Vascular occlusion [Unknown]
  - Off label use [Unknown]
  - Off label use [Unknown]
  - Intentional product use issue [Unknown]
  - Incorrect dose administered [Unknown]
  - Inappropriate schedule of product administration [Unknown]

NARRATIVE: CASE EVENT DATE: 20221201
